FAERS Safety Report 23228122 (Version 1)
Quarter: 2023Q4

REPORT INFORMATION
  Report Type: Report from Study
  Country: CN (occurrence: CN)
  Receive Date: 20231125
  Receipt Date: 20231125
  Transmission Date: 20240109
  Serious: Yes (Other)
  Sender: FDA-Public Use
  Company Number: CN-002147023-NVSC2023CN249314

PATIENT
  Sex: Female

DRUGS (2)
  1. LEQVIO [Suspect]
     Active Substance: INCLISIRAN SODIUM
     Indication: Hyperlipidaemia
     Dosage: 1.5 ML (AFTER THE FIRST ADMINISTRATION, THE DRUG WAS GIVEN AGAIN AT 3 MONTHS LATER, AND THEN ONCE EV
     Route: 058
     Dates: start: 20231017
  2. LEQVIO [Suspect]
     Active Substance: INCLISIRAN SODIUM
     Dosage: UNK
     Route: 065
     Dates: start: 20231118

REACTIONS (4)
  - Arrhythmia [Unknown]
  - Spinal pain [Unknown]
  - Malaise [Unknown]
  - Palpitations [Unknown]

NARRATIVE: CASE EVENT DATE: 20231118
